FAERS Safety Report 24018148 (Version 1)
Quarter: 2024Q2

REPORT INFORMATION
  Report Type: Report from Study
  Country: CA (occurrence: CA)
  Receive Date: 20240627
  Receipt Date: 20240627
  Transmission Date: 20240716
  Serious: Yes (Other)
  Sender: FDA-Public Use
  Company Number: CA-Eisai-EC-2024-168653

PATIENT
  Age: 64 Year
  Sex: Female

DRUGS (4)
  1. LENVIMA [Suspect]
     Active Substance: LENVATINIB
     Indication: Carcinoid syndrome
     Route: 048
  2. LANREOTIDE ACETATE [Suspect]
     Active Substance: LANREOTIDE ACETATE
     Indication: Gastroenteropancreatic neuroendocrine tumour disease
     Route: 058
  3. LANREOTIDE ACETATE [Suspect]
     Active Substance: LANREOTIDE ACETATE
     Indication: Carcinoid syndrome
  4. HYDROCHLOROTHIAZIDE [Concomitant]
     Active Substance: HYDROCHLOROTHIAZIDE

REACTIONS (10)
  - Abdominal pain [Unknown]
  - Decreased appetite [Unknown]
  - Diarrhoea [Unknown]
  - Drug ineffective [Unknown]
  - Flushing [Unknown]
  - Hypertension [Unknown]
  - Malignant neoplasm progression [Unknown]
  - Muscle spasms [Unknown]
  - Off label use [Unknown]
  - Pain in extremity [Unknown]
